FAERS Safety Report 7824768-7 (Version None)
Quarter: 2011Q4

REPORT INFORMATION
  Report Type: 
  Country: None (occurrence: None)
  Receive Date: 20111019
  Receipt Date: 20101214
  Transmission Date: 20120403
  Serious: No
  Sender: FDA-Public Use
  Company Number: US-BRISTOL-MYERS SQUIBB COMPANY-15441587

PATIENT
  Age: 46 Year
  Sex: Male

DRUGS (3)
  1. ALLEGRA [Concomitant]
  2. AVALIDE [Suspect]
     Dosage: 1 DF=150/12.5 MG,DURATION=2-3 WEEKS
  3. NASONEX [Concomitant]

REACTIONS (1)
  - DYSPNOEA EXERTIONAL [None]
